FAERS Safety Report 7791762-4 (Version None)
Quarter: 2011Q4

REPORT INFORMATION
  Report Type: 
  Country: None (occurrence: None)
  Receive Date: 20111003
  Receipt Date: 20110927
  Transmission Date: 20120403
  Serious: No
  Sender: FDA-Public Use
  Company Number: US-PFIZER INC-2011210160

PATIENT
  Sex: Female

DRUGS (2)
  1. IBUPROFEN (ADVIL) [Suspect]
     Indication: ARTHRITIS
     Dosage: TABLET ONCE A DAY
     Route: 048
     Dates: start: 20110901, end: 20110907
  2. IBUPROFEN (ADVIL) [Suspect]
     Indication: PAIN

REACTIONS (1)
  - DIZZINESS [None]
